FAERS Safety Report 21876694 (Version 2)
Quarter: 2023Q1

REPORT INFORMATION
  Report Type: Spontaneous
  Country: CA (occurrence: CA)
  Receive Date: 20230118
  Receipt Date: 20230202
  Transmission Date: 20230418
  Serious: Yes (Death)
  Sender: FDA-Public Use
  Company Number: CA-BAYER-2023A005115

PATIENT
  Sex: Male

DRUGS (2)
  1. EYLEA [Suspect]
     Active Substance: AFLIBERCEPT
     Indication: Maculopathy
     Dosage: UNK, SOLUTION FOR INJECTION, 40MG/ML
  2. EYLEA [Suspect]
     Active Substance: AFLIBERCEPT
     Dosage: UNK, LAST DOSE; SOLUTION FOR INJECTION; 40 MG/ML
     Dates: start: 20221125, end: 20221125

REACTIONS (2)
  - Death [Fatal]
  - Off label use [Unknown]
